FAERS Safety Report 17072420 (Version 1)
Quarter: 2019Q4

REPORT INFORMATION
  Report Type: Spontaneous
  Country: US (occurrence: US)
  Receive Date: 20191123
  Receipt Date: 20191123
  Transmission Date: 20200122
  Serious: No
  Sender: FDA-Public Use
  Company Number: None

PATIENT
  Age: 33 Year
  Weight: 99 kg

DRUGS (31)
  1. CLONAZEPAM. [Concomitant]
     Active Substance: CLONAZEPAM
  2. FISH OIL [Concomitant]
     Active Substance: FISH OIL
  3. VITAMIN E [Concomitant]
     Active Substance: .ALPHA.-TOCOPHEROL
  4. BUPRENORPHINE TRANSDERMAL SYSTEM [Suspect]
     Active Substance: BUPRENORPHINE
     Indication: PSORIATIC ARTHROPATHY
     Dosage: ?          QUANTITY:1 PATCH(ES);OTHER FREQUENCY:ONCE WEEKLY;?
     Route: 062
  5. LEFLUNOMIDE. [Concomitant]
     Active Substance: LEFLUNOMIDE
  6. SENNA S [Concomitant]
     Active Substance: DOCUSATE SODIUM\SENNA LEAF
  7. EPIPEN [Concomitant]
     Active Substance: EPINEPHRINE
  8. MAGNESIUM [Concomitant]
     Active Substance: MAGNESIUM
  9. BUTRANS [Concomitant]
     Active Substance: BUPRENORPHINE
  10. MULTIVITAMINS [Concomitant]
     Active Substance: VITAMINS
  11. AMILORIDE [Suspect]
     Active Substance: AMILORIDE
  12. NABUMETONE. [Concomitant]
     Active Substance: NABUMETONE
  13. METHOTREXATE. [Concomitant]
     Active Substance: METHOTREXATE
  14. VITAMIN D [Concomitant]
     Active Substance: VITAMIN D NOS
  15. LEVOTHYROXINE. [Concomitant]
     Active Substance: LEVOTHYROXINE
  16. MYRBETRIQ [Suspect]
     Active Substance: MIRABEGRON
  17. LYRICA [Concomitant]
     Active Substance: PREGABALIN
  18. RANITIDINE. [Concomitant]
     Active Substance: RANITIDINE
  19. TESTOSTERONE. [Concomitant]
     Active Substance: TESTOSTERONE
  20. ALBUTEROL INHALER [Concomitant]
     Active Substance: ALBUTEROL
  21. ONDANSETRON [Concomitant]
     Active Substance: ONDANSETRON
  22. VITAMIN B2 [Concomitant]
     Active Substance: RIBOFLAVIN
  23. FINASTERIDE. [Concomitant]
     Active Substance: FINASTERIDE
  24. NARATRIPTAN [Concomitant]
     Active Substance: NARATRIPTAN HYDROCHLORIDE
  25. PRAZOSIN. [Concomitant]
     Active Substance: PRAZOSIN
  26. FOLIC ACID. [Concomitant]
     Active Substance: FOLIC ACID
  27. CLOMIPRAMINE [Concomitant]
     Active Substance: CLOMIPRAMINE
  28. EVOXAC [Concomitant]
     Active Substance: CEVIMELINE HYDROCHLORIDE
  29. SKELAXIN [Concomitant]
     Active Substance: METAXALONE
  30. ENBREL [Concomitant]
     Active Substance: ETANERCEPT
  31. VITAMIN E [Concomitant]
     Active Substance: .ALPHA.-TOCOPHEROL

REACTIONS (5)
  - Product substitution issue [None]
  - Breakthrough pain [None]
  - Hyperhidrosis [None]
  - Device adhesion issue [None]
  - Withdrawal syndrome [None]

NARRATIVE: CASE EVENT DATE: 20190405
